FAERS Safety Report 20921145 (Version 1)
Quarter: 2022Q2

REPORT INFORMATION
  Report Type: Spontaneous
  Country: CN (occurrence: CN)
  Receive Date: 20220606
  Receipt Date: 20220606
  Transmission Date: 20220721
  Serious: Yes (Other)
  Sender: FDA-Public Use
  Company Number: CN-PFIZER INC-202200798178

PATIENT
  Age: 29 Year
  Sex: Female
  Weight: 46.7 kg

DRUGS (2)
  1. METHYLPREDNISOLONE [Suspect]
     Active Substance: METHYLPREDNISOLONE
     Indication: Transplant rejection
     Dosage: 8 MG, 1X/DAY
     Route: 048
     Dates: start: 20220518, end: 20220601
  2. DEXAMETHASONE SODIUM PHOSPHATE [Suspect]
     Active Substance: DEXAMETHASONE SODIUM PHOSPHATE
     Indication: Transplant rejection
     Dosage: 2 MG, 1X/DAY
     Route: 042
     Dates: start: 20220502, end: 20220518

REACTIONS (4)
  - Central hypothyroidism [Recovering/Resolving]
  - Tri-iodothyronine decreased [Recovering/Resolving]
  - Thyroxine decreased [Recovering/Resolving]
  - Off label use [Unknown]

NARRATIVE: CASE EVENT DATE: 20220518
